FAERS Safety Report 23192620 (Version 1)
Quarter: 2023Q4

REPORT INFORMATION
  Report Type: Other
  Country: DE (occurrence: DE)
  Receive Date: 20231116
  Receipt Date: 20231116
  Transmission Date: 20240110
  Serious: Yes (Hospitalization)
  Sender: FDA-Public Use
  Company Number: DE-KARYOPHARM-2023KPT002181

PATIENT

DRUGS (4)
  1. SELINEXOR [Suspect]
     Active Substance: SELINEXOR
     Indication: Plasma cell myeloma
     Dosage: 100 MG, SINGLE
     Route: 048
     Dates: start: 20231010, end: 20231010
  2. BORTEZOMIB [Concomitant]
     Active Substance: BORTEZOMIB
     Dosage: 2.25 MG
     Route: 058
     Dates: start: 20231010
  3. DEXAMETHASONE [Concomitant]
     Active Substance: DEXAMETHASONE
     Dosage: 20 MG
     Route: 048
     Dates: start: 20231010
  4. DEXAMETHASONE [Concomitant]
     Active Substance: DEXAMETHASONE
     Dosage: 20 MG
     Dates: start: 20231011

REACTIONS (3)
  - Disorientation [Unknown]
  - Personality change [Unknown]
  - Confusional state [Unknown]

NARRATIVE: CASE EVENT DATE: 20231013
